FAERS Safety Report 8549677-X (Version None)
Quarter: 2012Q3

REPORT INFORMATION
  Report Type: 
  Country: None (occurrence: None)
  Receive Date: 20120730
  Receipt Date: 20120723
  Transmission Date: 20120928
  Serious: Yes (Other)
  Sender: FDA-Public Use
  Company Number: JP-PFIZER INC-2012077490

PATIENT
  Age: 87 Year
  Sex: Female

DRUGS (4)
  1. XALATAN [Suspect]
     Indication: GLAUCOMA
     Dosage: UNK
     Route: 047
     Dates: start: 20090101
  2. NEXIUM [Concomitant]
     Indication: GASTROOESOPHAGEAL REFLUX DISEASE
     Dosage: UNK
     Route: 048
  3. DEPAS [Concomitant]
     Indication: INSOMNIA
     Dosage: 0.5 MG/DAY
     Route: 048
     Dates: start: 20070830
  4. CONIEL [Concomitant]
     Indication: HYPERTENSION
     Dosage: 4 MG/DAY
     Route: 048
     Dates: start: 20040830

REACTIONS (3)
  - MALAISE [None]
  - CHEST DISCOMFORT [None]
  - CHEST PAIN [None]
